FAERS Safety Report 12638241 (Version 1)
Quarter: 2016Q3

REPORT INFORMATION
  Report Type: Spontaneous
  Country: US (occurrence: US)
  Receive Date: 20160809
  Receipt Date: 20160809
  Transmission Date: 20161109
  Serious: No
  Sender: FDA-Public Use
  Company Number: US-SA-2016SA085329

PATIENT
  Age: 59 Year
  Sex: Male
  Weight: 68.94 kg

DRUGS (6)
  1. PRALUENT [Suspect]
     Active Substance: ALIROCUMAB
     Indication: HYPERLIPIDAEMIA
     Route: 065
     Dates: start: 20160412, end: 20160419
  2. ASA [Concomitant]
     Active Substance: ASPIRIN
  3. PRALUENT [Suspect]
     Active Substance: ALIROCUMAB
     Indication: BLOOD CHOLESTEROL
     Route: 065
     Dates: start: 20160412, end: 20160419
  4. ALIROCUMAB PREFILLED PEN [Concomitant]
     Active Substance: ALIROCUMAB
     Indication: BLOOD CHOLESTEROL
     Route: 065
     Dates: start: 2016, end: 20160419
  5. METOPROLOL. [Concomitant]
     Active Substance: METOPROLOL
  6. NEXIUM [Concomitant]
     Active Substance: ESOMEPRAZOLE MAGNESIUM

REACTIONS (5)
  - Injection site urticaria [Recovered/Resolved]
  - Infection [Not Recovered/Not Resolved]
  - Urticaria [Recovered/Resolved]
  - Skin lesion [Recovered/Resolved]
  - Hypersensitivity [Recovered/Resolved]

NARRATIVE: CASE EVENT DATE: 20160420
